FAERS Safety Report 8597497-2 (Version None)
Quarter: 2012Q3

REPORT INFORMATION
  Report Type: 
  Country: None (occurrence: None)
  Receive Date: 20120802
  Receipt Date: 20120719
  Transmission Date: 20120928
  Serious: Yes (Other)
  Sender: FDA-Public Use
  Company Number: 1206-295

PATIENT
  Age: 80 Year
  Sex: Female

DRUGS (10)
  1. FLUTICASONE PROPIONATE [Concomitant]
  2. VITAMIN D [Concomitant]
  3. CLONAZEPINE [Concomitant]
  4. PRESERVISION (PRESERVISION LUTEIN EYE VIAT.+MIN.SUP.SOFTG.) [Concomitant]
  5. NAPROSYN [Concomitant]
  6. ADVAIR HFA [Concomitant]
  7. CETRIZINE (CETIRIZINE HYDROCHLORIDE) [Concomitant]
  8. EYLEA [Suspect]
     Indication: AGE-RELATED MACULAR DEGENERATION
     Dates: start: 20120605
  9. MIRTAZAPINE [Concomitant]
  10. GABAPENTIN [Concomitant]

REACTIONS (3)
  - BLINDNESS UNILATERAL [None]
  - EYE DISORDER [None]
  - TRANSIENT ISCHAEMIC ATTACK [None]
